FAERS Safety Report 8213406-X (Version None)
Quarter: 2012Q1

REPORT INFORMATION
  Report Type: 
  Country: None (occurrence: None)
  Receive Date: 20120315
  Receipt Date: 20120302
  Transmission Date: 20120608
  Serious: Yes (Hospitalization)
  Sender: FDA-Public Use
  Company Number: US-ROCHE-1045241

PATIENT
  Age: 73 Year
  Sex: Female

DRUGS (2)
  1. BONIVA [Suspect]
     Indication: PRODUCT USED FOR UNKNOWN INDICATION
  2. ACTONEL [Suspect]
     Indication: PRODUCT USED FOR UNKNOWN INDICATION

REACTIONS (7)
  - FALL [None]
  - PARAESTHESIA [None]
  - ARTHROPATHY [None]
  - ARTHRITIS [None]
  - PAIN [None]
  - LIGAMENT SPRAIN [None]
  - BURNING SENSATION [None]
